FAERS Safety Report 23196924 (Version 1)
Quarter: 2023Q4

REPORT INFORMATION
  Report Type: Spontaneous
  Country: BR (occurrence: BR)
  Receive Date: 20231117
  Receipt Date: 20231117
  Transmission Date: 20240110
  Serious: Yes (Other)
  Sender: FDA-Public Use
  Company Number: BR-JNJFOC-20231126260

PATIENT
  Sex: Male
  Weight: 68 kg

DRUGS (1)
  1. ZYTIGA [Suspect]
     Active Substance: ABIRATERONE ACETATE
     Indication: Prostate cancer metastatic
     Dosage: 2 TABLETS PER DAY
     Route: 048

REACTIONS (2)
  - Duodenal ulcer [Unknown]
  - Prostatic specific antigen abnormal [Unknown]
